FAERS Safety Report 14657836 (Version 1)
Quarter: 2018Q1

REPORT INFORMATION
  Report Type: Spontaneous
  Country: US (occurrence: US)
  Receive Date: 20180320
  Receipt Date: 20180320
  Transmission Date: 20180509
  Serious: No
  Sender: FDA-Public Use
  Company Number: US-009507513-1803USA007702

PATIENT
  Age: 19 Year
  Sex: Female
  Weight: 53.52 kg

DRUGS (1)
  1. NEXPLANON [Suspect]
     Active Substance: ETONOGESTREL
     Indication: CONTRACEPTION
     Dosage: 1 IMPLANT, EVERY 3 YEARS IN THE RIGHT ARM
     Route: 059
     Dates: start: 20170406

REACTIONS (3)
  - Depressed mood [Unknown]
  - Weight decreased [Unknown]
  - Vaginal haemorrhage [Unknown]

NARRATIVE: CASE EVENT DATE: 20170406
